FAERS Safety Report 17072057 (Version 4)
Quarter: 2024Q1

REPORT INFORMATION
  Report Type: Spontaneous
  Country: US (occurrence: US)
  Receive Date: 20191125
  Receipt Date: 20240327
  Transmission Date: 20240409
  Serious: Yes (Hospitalization)
  Sender: FDA-Public Use
  Company Number: US-AMNEAL PHARMACEUTICALS-2019-AMRX-02716

PATIENT
  Age: 37 Year
  Sex: Female
  Weight: 104.31 kg

DRUGS (9)
  1. ACTIVELLA [Suspect]
     Active Substance: ESTRADIOL\NORETHINDRONE ACETATE
     Indication: Endometriosis
     Dosage: EVERY 1 DAYS
     Route: 048
     Dates: start: 20190116
  2. ELAGOLIX [Suspect]
     Active Substance: ELAGOLIX
     Indication: Endometriosis
     Dosage: 200 MG, 2/DAYS
     Route: 048
     Dates: start: 20180718, end: 20190115
  3. ELAGOLIX [Suspect]
     Active Substance: ELAGOLIX
     Dosage: 200 MILLIGRAM, 2X/DAY
     Route: 048
     Dates: start: 20190116, end: 20191026
  4. ELAGOLIX [Suspect]
     Active Substance: ELAGOLIX
     Dosage: 200 MILLIGRAM, 2X/DAY
     Route: 048
     Dates: start: 20191028
  5. PLACEBO [Suspect]
     Active Substance: PLACEBO
     Indication: Endometriosis
     Dosage: EVERY 1 DAYS
     Route: 048
     Dates: start: 20180718, end: 20190115
  6. PIROXICAM [Concomitant]
     Active Substance: PIROXICAM
     Indication: Anxiety
     Dosage: 20 MILLIGRAM, 1 /DAY
     Route: 048
     Dates: start: 2017
  7. EXCEDRIN MIGRAINE [Concomitant]
     Active Substance: ACETAMINOPHEN\ASPIRIN\CAFFEINE
     Indication: Migraine
     Dosage: 1 TABLETS, AS NEEDED
     Route: 048
     Dates: start: 2005
  8. ACETAMINOPHEN\HYDROCODONE [Concomitant]
     Active Substance: ACETAMINOPHEN\HYDROCODONE
     Indication: Analgesic therapy
     Dosage: UNK
     Route: 065
     Dates: start: 20180718
  9. IBUPROFEN [Concomitant]
     Active Substance: IBUPROFEN
     Indication: Endometriosis
     Dosage: 200 MILLIGRAM, AS NEEDED
     Route: 065
     Dates: start: 1998

REACTIONS (3)
  - Inflammatory bowel disease [Recovered/Resolved]
  - Abdominal pain lower [Recovered/Resolved]
  - Nausea [Recovered/Resolved]

NARRATIVE: CASE EVENT DATE: 20191027
